FAERS Safety Report 4751531-6 (Version None)
Quarter: 2005Q3

REPORT INFORMATION
  Report Type: 
  Country: None (occurrence: None)
  Receive Date: 20050822
  Receipt Date: 20050622
  Transmission Date: 20060218
  Serious: Yes (Other)
  Sender: FDA-Public Use
  Company Number: 11680

PATIENT
  Age: 57 Year
  Sex: Male
  Weight: 89 kg

DRUGS (6)
  1. FLUOROURACIL [Suspect]
     Indication: COLON CANCER
     Dosage: 1000 MG/M2 PER_CYCLE IV
     Route: 042
  2. FLUOROURACIL [Suspect]
     Indication: METASTASES TO LIVER
     Dosage: 1000 MG/M2 PER_CYCLE IV
     Route: 042
  3. IRINOTECAN [Suspect]
     Indication: COLON CANCER
     Dosage: 180 MG/M2 PER_CYCLE IV
     Route: 042
  4. IRINOTECAN [Suspect]
     Indication: METASTASES TO LIVER
     Dosage: 180 MG/M2 PER_CYCLE IV
     Route: 042
  5. FOLINIC ACID [Suspect]
     Indication: COLON CANCER
     Dosage: 200 MG/M2 PER_CYCLE IV
     Route: 042
  6. FOLINIC ACID [Suspect]
     Indication: METASTASES TO LIVER
     Dosage: 200 MG/M2 PER_CYCLE IV
     Route: 042

REACTIONS (1)
  - ARTERIOSPASM CORONARY [None]
